FAERS Safety Report 23397903 (Version 2)
Quarter: 2024Q1

REPORT INFORMATION
  Report Type: Spontaneous
  Country: PT (occurrence: PT)
  Receive Date: 20240112
  Receipt Date: 20240124
  Transmission Date: 20240410
  Serious: Yes (Hospitalization, Other)
  Sender: FDA-Public Use
  Company Number: PT-BAXTER-2024BAX010415

PATIENT
  Age: 18 Year
  Sex: Male

DRUGS (3)
  1. CALCIUM CL\DEXTROSE\MAGNESIUM CL\SODIUM BICAR\SODIUM CL\SODIUM LACT [Suspect]
     Active Substance: CALCIUM CHLORIDE\DEXTROSE MONOHYDRATE\MAGNESIUM CHLORIDE\SODIUM BICARBONATE\SODIUM CHLORIDE\SODIUM L
     Indication: Peritoneal dialysis
     Dosage: 12.5 LITERS
     Route: 033
     Dates: start: 20230216
  2. CALCIUM CL\DEXTROSE\MAGNESIUM CL\SODIUM BICAR\SODIUM CL\SODIUM LACT [Suspect]
     Active Substance: CALCIUM CHLORIDE\DEXTROSE MONOHYDRATE\MAGNESIUM CHLORIDE\SODIUM BICARBONATE\SODIUM CHLORIDE\SODIUM L
     Dosage: 1500 ML THRICE
     Route: 033
     Dates: start: 20231231
  3. EXTRANEAL [Suspect]
     Active Substance: CALCIUM CHLORIDE\ICODEXTRIN\MAGNESIUM CHLORIDE\SODIUM CHLORIDE\SODIUM LACTATE
     Indication: Peritoneal dialysis
     Dosage: UNK
     Route: 033
     Dates: start: 20231121

REACTIONS (8)
  - Peritonitis bacterial [Recovered/Resolved]
  - Peritoneal cloudy effluent [Recovered/Resolved]
  - Peritonitis bacterial [Recovered/Resolved]
  - Peritoneal cloudy effluent [Unknown]
  - Abdominal pain [Unknown]
  - Malaise [Unknown]
  - Peritonitis bacterial [Not Recovered/Not Resolved]
  - Peritoneal dialysis complication [Unknown]

NARRATIVE: CASE EVENT DATE: 20231226
